FAERS Safety Report 7569150-5 (Version None)
Quarter: 2011Q2

REPORT INFORMATION
  Report Type: 
  Country: None (occurrence: None)
  Receive Date: 20110623
  Receipt Date: 20110609
  Transmission Date: 20111010
  Serious: Yes (Hospitalization, Other)
  Sender: FDA-Public Use
  Company Number: PHHY2011US51428

PATIENT
  Age: 96 Year
  Sex: Female

DRUGS (9)
  1. VITAMIN D [Concomitant]
  2. THYROID TAB [Concomitant]
     Dosage: ONE GRAIN
  3. BETIMOL [Concomitant]
     Dosage: BID
  4. TEKTURNA [Suspect]
     Dosage: 150 MG, QD
  5. ASPIRIN [Concomitant]
  6. CALCIUM CARBONATE [Concomitant]
     Dosage: 50,000 UNIT
  7. CELEBREX [Concomitant]
     Dosage: 100 MG, UNK
  8. NORVASC [Concomitant]
     Dosage: 5 MG, UNK
  9. AZOPT [Concomitant]
     Dosage: ONE PERCENT

REACTIONS (5)
  - HEADACHE [None]
  - UPPER LIMB FRACTURE [None]
  - BLOOD PRESSURE INCREASED [None]
  - FALL [None]
  - HYPOTENSION [None]
